FAERS Safety Report 10344804 (Version 2)
Quarter: 2014Q3

REPORT INFORMATION
  Report Type: Spontaneous
  Country: US (occurrence: US)
  Receive Date: 20140728
  Receipt Date: 20140819
  Transmission Date: 20150326
  Serious: Yes (Life-Threatening, Other)
  Sender: FDA-Public Use
  Company Number: US-JNJFOC-20140710720

PATIENT
  Sex: Male

DRUGS (1)
  1. DURAGESIC [Suspect]
     Active Substance: FENTANYL
     Indication: PRODUCT USED FOR UNKNOWN INDICATION
     Route: 062

REACTIONS (9)
  - Incorrect drug administration duration [Unknown]
  - Wrong technique in drug usage process [Unknown]
  - Fall [Unknown]
  - Cardiac arrest [Unknown]
  - Spinal fracture [Unknown]
  - Bradycardia [Unknown]
  - Inappropriate schedule of drug administration [Unknown]
  - Withdrawal syndrome [Unknown]
  - Haematemesis [Unknown]

NARRATIVE: CASE EVENT DATE: 201311
